FAERS Safety Report 18595890 (Version 1)
Quarter: 2020Q4

REPORT INFORMATION
  Report Type: Spontaneous
  Country: US (occurrence: US)
  Receive Date: 20201209
  Receipt Date: 20201209
  Transmission Date: 20210114
  Serious: Yes (Other)
  Sender: FDA-Public Use
  Company Number: US-SUPERNUS PHARMACEUTICALS, INC.-2020SUP00082

PATIENT
  Sex: Female
  Weight: 81.63 kg

DRUGS (6)
  1. TROKENDI XR [Suspect]
     Active Substance: TOPIRAMATE
     Dosage: 100 MG, 1X/DAY
     Dates: start: 20200421
  2. GENERIC FIORICET [Concomitant]
  3. TROKENDI XR [Suspect]
     Active Substance: TOPIRAMATE
     Indication: MIGRAINE
     Dosage: UNK
     Dates: start: 201711, end: 201803
  4. TROKENDI XR [Suspect]
     Active Substance: TOPIRAMATE
     Dosage: TAPERED UP TO 100 MG PER DAY
     Dates: start: 20200323, end: 202004
  5. TROKENDI XR [Suspect]
     Active Substance: TOPIRAMATE
     Dosage: 50 MG, 1X/DAY
     Dates: start: 202004, end: 20200420
  6. BUTORPHANOL [Concomitant]
     Active Substance: BUTORPHANOL

REACTIONS (2)
  - Weight decreased [Recovered/Resolved]
  - Abdominal pain [Not Recovered/Not Resolved]
